FAERS Safety Report 12174465 (Version 1)
Quarter: 2016Q1

REPORT INFORMATION
  Report Type: Spontaneous
  Country: US (occurrence: US)
  Receive Date: 20160313
  Receipt Date: 20160313
  Transmission Date: 20160526
  Serious: No
  Sender: FDA-Public Use
  Company Number: US-B.I. PHARMACEUTICALS,INC./RIDGEFIELD-2016-BI-06805BP

PATIENT

DRUGS (1)
  1. CLONIDINE. [Suspect]
     Active Substance: CLONIDINE
     Indication: PRODUCT USED FOR UNKNOWN INDICATION
     Route: 065

REACTIONS (1)
  - Blood pressure fluctuation [Unknown]
